FAERS Safety Report 8800137 (Version 1)
Quarter: 2012Q4

REPORT INFORMATION
  Report Type: Spontaneous
  Country: US (occurrence: None)
  Receive Date: 20120918
  Receipt Date: 20120918
  Transmission Date: 20130627
  Serious: Yes (Other)
  Sender: FDA-Public Use
  Company Number: None

PATIENT
  Age: 63 Year
  Sex: Male
  Weight: 113.4 kg

DRUGS (1)
  1. VIAGRA [Suspect]

REACTIONS (4)
  - Tension [None]
  - Convulsion [None]
  - Heart rate decreased [None]
  - Blood pressure decreased [None]
